FAERS Safety Report 17013226 (Version 2)
Quarter: 2020Q1

REPORT INFORMATION
  Report Type: Report from Study
  Country: IL (occurrence: IL)
  Receive Date: 20191110
  Receipt Date: 20200108
  Transmission Date: 20200409
  Serious: Yes (Other)
  Sender: FDA-Public Use
  Company Number: PHHY2018IL021437

PATIENT
  Age: 23 Year
  Sex: Female

DRUGS (1)
  1. GILENYA [Suspect]
     Active Substance: FINGOLIMOD HYDROCHLORIDE
     Indication: MULTIPLE SCLEROSIS
     Dosage: UNK, QD
     Route: 048
     Dates: start: 20140123

REACTIONS (5)
  - White blood cell count decreased [Unknown]
  - Alanine aminotransferase increased [Unknown]
  - Lymphopenia [Recovered/Resolved]
  - Sinusitis [Recovered/Resolved]
  - Aspartate aminotransferase increased [Unknown]

NARRATIVE: CASE EVENT DATE: 20141019
